FAERS Safety Report 15348022 (Version 2)
Quarter: 2018Q3

REPORT INFORMATION
  Report Type: Spontaneous
  Country: US (occurrence: US)
  Receive Date: 20180904
  Receipt Date: 20180917
  Transmission Date: 20181010
  Serious: Yes (Hospitalization, Other)
  Sender: FDA-Public Use
  Company Number: US-NOVOPROD-606661

PATIENT
  Age: 34 Year
  Sex: Female
  Weight: 124.8 kg

DRUGS (3)
  1. LANTUS [Concomitant]
     Active Substance: INSULIN GLARGINE
     Indication: TYPE 2 DIABETES MELLITUS
     Dosage: 44 U, QD
     Route: 058
     Dates: start: 20180424
  2. NOVOLOG [Suspect]
     Active Substance: INSULIN ASPART
     Indication: TYPE 2 DIABETES MELLITUS
     Dosage: 16 U, TID AT MEALS
     Route: 058
     Dates: start: 20180424, end: 20180625
  3. CYCLAFEM [Concomitant]
     Indication: CONTRACEPTION
     Dosage: UNK
     Dates: start: 20161130, end: 20171204

REACTIONS (3)
  - Proteinuria [Not Recovered/Not Resolved]
  - Exposure during pregnancy [Recovered/Resolved]
  - Pre-eclampsia [Recovered/Resolved]

NARRATIVE: CASE EVENT DATE: 20171020
